FAERS Safety Report 8546010-4 (Version None)
Quarter: 2012Q3

REPORT INFORMATION
  Report Type: 
  Country: None (occurrence: None)
  Receive Date: 20120727
  Receipt Date: 20111201
  Transmission Date: 20120928
  Serious: No
  Sender: FDA-Public Use
  Company Number: US-ASTRAZENECA-2011SE73086

PATIENT
  Age: 39 Year
  Sex: Male
  Weight: 72.6 kg

DRUGS (2)
  1. SEROQUEL XR [Suspect]
     Indication: SLEEP DISORDER
     Route: 048
  2. CLONIDINE [Concomitant]

REACTIONS (2)
  - OFF LABEL USE [None]
  - FEELING ABNORMAL [None]
